FAERS Safety Report 25853365 (Version 1)
Quarter: 2025Q3

REPORT INFORMATION
  Report Type: Report from Study
  Country: US (occurrence: US)
  Receive Date: 20250926
  Receipt Date: 20250926
  Transmission Date: 20251021
  Serious: Yes (Hospitalization)
  Sender: MYLAN
  Company Number: US-MYLANLABS-2025M1081543

PATIENT
  Age: 76 Year
  Sex: Male

DRUGS (4)
  1. YUPELRI [Suspect]
     Active Substance: REVEFENACIN
     Indication: Pulmonary fibrosis
     Dosage: 175 MICROGRAM PER 3 MILLILITRE, QD (ONCE DAILY)
     Dates: start: 20250918, end: 20250919
  2. YUPELRI [Suspect]
     Active Substance: REVEFENACIN
     Indication: Pneumoconiosis
     Dosage: 175 MICROGRAM PER 3 MILLILITRE, QD (ONCE DAILY)
     Route: 065
     Dates: start: 20250918, end: 20250919
  3. YUPELRI [Suspect]
     Active Substance: REVEFENACIN
     Dosage: 175 MICROGRAM PER 3 MILLILITRE, QD (ONCE DAILY)
     Route: 065
     Dates: start: 20250918, end: 20250919
  4. YUPELRI [Suspect]
     Active Substance: REVEFENACIN
     Dosage: 175 MICROGRAM PER 3 MILLILITRE, QD (ONCE DAILY)
     Dates: start: 20250918, end: 20250919

REACTIONS (4)
  - Tremor [Recovered/Resolved]
  - Nausea [Recovered/Resolved]
  - Chest pain [Recovered/Resolved]
  - Dyspnoea [Recovered/Resolved]

NARRATIVE: CASE EVENT DATE: 20250918
